FAERS Safety Report 21785297 (Version 1)
Quarter: 2022Q4

REPORT INFORMATION
  Report Type: Spontaneous
  Country: NL (occurrence: NL)
  Receive Date: 20221227
  Receipt Date: 20221227
  Transmission Date: 20230113
  Serious: Yes (Other)
  Sender: FDA-Public Use
  Company Number: None

PATIENT
  Sex: Female
  Weight: 85 kg

DRUGS (2)
  1. OXAZEPAM [Suspect]
     Active Substance: OXAZEPAM
     Indication: Aggression
     Dosage: 10 MG 1 OR 2 X PER DAY   , BRAND NAME NOT SPECIFIED  ,THERAPY END DATE : ASKU
     Dates: start: 20220401
  2. SOTALOL [Suspect]
     Active Substance: SOTALOL
     Indication: Heart rate increased
     Dosage: 80 MILLIGRAM DAILY; 2X PER DAY, BRAND NAME NOT SPECIFIED ,  THERAPY END DATE : ASKU
     Dates: start: 20220202

REACTIONS (3)
  - Hallucination [Not Recovered/Not Resolved]
  - Aggression [Not Recovered/Not Resolved]
  - Urinary incontinence [Not Recovered/Not Resolved]
